FAERS Safety Report 11725612 (Version 1)
Quarter: 2015Q4

REPORT INFORMATION
  Report Type: Spontaneous
  Country: US (occurrence: US)
  Receive Date: 20151111
  Receipt Date: 20151111
  Transmission Date: 20160304
  Serious: No
  Sender: FDA-Public Use
  Company Number: US-UCBSA-2015027187

PATIENT
  Sex: Female

DRUGS (3)
  1. VIMPAT [Suspect]
     Active Substance: LACOSAMIDE
     Indication: PRODUCT USED FOR UNKNOWN INDICATION
     Dosage: UNKNOWN DOSE
  2. DEPAKENE [Concomitant]
     Active Substance: VALPROIC ACID
     Indication: PRODUCT USED FOR UNKNOWN INDICATION
  3. VIMPAT [Suspect]
     Active Substance: LACOSAMIDE
     Dosage: INCREASED DOSE

REACTIONS (7)
  - Palpitations [Unknown]
  - Dizziness [Unknown]
  - Pain [Unknown]
  - Somnolence [Unknown]
  - Weight increased [Unknown]
  - Insomnia [Unknown]
  - Irritability [Unknown]
